FAERS Safety Report 17037822 (Version 1)
Quarter: 2019Q4

REPORT INFORMATION
  Report Type: Spontaneous
  Country: CN (occurrence: CN)
  Receive Date: 20191115
  Receipt Date: 20191115
  Transmission Date: 20200122
  Serious: Yes (Disabling)
  Sender: FDA-Public Use
  Company Number: CN-BAXTER-2019BAX022715

PATIENT
  Age: 46 Year
  Sex: Male

DRUGS (6)
  1. 20% MANNITOL INJECTION [Suspect]
     Active Substance: MANNITOL
     Indication: REDUCTION OF INCREASED INTRACRANIAL PRESSURE
  2. GANGLIOSIDE (THIAMAZOLE) [Suspect]
     Active Substance: METHIMAZOLE
     Indication: NUTRITIONAL SUPPLEMENTATION
     Route: 041
     Dates: start: 20191021
  3. COMPOUND AMINO ACID (18AA) [Suspect]
     Active Substance: AMINO ACIDS, SOURCE UNSPECIFIED
     Indication: NUTRITIONAL SUPPLEMENTATION
     Route: 041
     Dates: start: 20191021, end: 20191105
  4. CITICOLINE SODIUM [Suspect]
     Active Substance: CITICOLINE SODIUM
     Indication: CEREBRAL HAEMORRHAGE
     Route: 041
     Dates: start: 20191021, end: 20191105
  5. 20% MANNITOL INJECTION [Suspect]
     Active Substance: MANNITOL
     Indication: DEHYDRATION
     Route: 041
     Dates: start: 20191021, end: 20191105
  6. ALANYL GLUTAMINE [Suspect]
     Active Substance: ALANYL GLUTAMINE
     Indication: NUTRITIONAL SUPPLEMENTATION
     Route: 041
     Dates: start: 20191021, end: 20191105

REACTIONS (1)
  - Transaminases increased [Unknown]

NARRATIVE: CASE EVENT DATE: 20191105
